FAERS Safety Report 23154267 (Version 1)
Quarter: 2023Q4

REPORT INFORMATION
  Report Type: Spontaneous
  Country: RO (occurrence: RO)
  Receive Date: 20231107
  Receipt Date: 20231107
  Transmission Date: 20240109
  Serious: Yes (Other)
  Sender: FDA-Public Use
  Company Number: RO-SUN PHARMACEUTICAL INDUSTRIES LTD-2023R1-416468

PATIENT
  Age: 60 Year
  Sex: Female

DRUGS (5)
  1. DOXORUBICIN [Suspect]
     Active Substance: DOXORUBICIN
     Indication: Chemotherapy
     Dosage: 50 MILLIGRAM/SQ. METER (DT 86 MG) DAY 2
     Route: 065
     Dates: start: 20221005, end: 20221006
  2. VINCRISTINE [Suspect]
     Active Substance: VINCRISTINE
     Indication: Chemotherapy
     Dosage: 1.4 MILLIGRAM/SQ. METER (DT 2 MG) DAY 2
     Route: 065
     Dates: start: 20221005, end: 20221006
  3. CYCLOPHOSPHAMIDE [Suspect]
     Active Substance: CYCLOPHOSPHAMIDE
     Indication: Chemotherapy
     Dosage: 750 MILLIGRAM/SQ. METER, (DT 1297 MG), DAY 2
     Route: 065
     Dates: start: 20221005, end: 20221006
  4. RITUXIMAB [Suspect]
     Active Substance: RITUXIMAB
     Indication: Chemotherapy
     Dosage: 375 MILLIGRAM/SQ. METER (648 MG), DAY 1
     Route: 065
     Dates: start: 20221005, end: 20221006
  5. SOLU-MEDROL [Suspect]
     Active Substance: METHYLPREDNISOLONE SODIUM SUCCINATE
     Indication: Chemotherapy
     Dosage: UNK
     Route: 065
     Dates: start: 20221005, end: 20221006

REACTIONS (2)
  - Disease progression [Unknown]
  - Paraneoplastic syndrome [Recovering/Resolving]

NARRATIVE: CASE EVENT DATE: 20230301
